FAERS Safety Report 6279663-4 (Version None)
Quarter: 2009Q3

REPORT INFORMATION
  Report Type: 
  Country: None (occurrence: None)
  Receive Date: 20090723
  Receipt Date: 20070717
  Transmission Date: 20100115
  Serious: Yes (Hospitalization, Other)
  Sender: FDA-Public Use
  Company Number: US-ASTRAZENECA-2007UW02033

PATIENT
  Age: 17045 Day
  Sex: Female
  Weight: 70.3 kg

DRUGS (36)
  1. SEROQUEL [Suspect]
     Indication: SCHIZOPHRENIA
     Route: 048
     Dates: start: 20001011, end: 20010226
  2. SEROQUEL [Suspect]
     Indication: DEPRESSION
     Route: 048
     Dates: start: 20001011, end: 20010226
  3. SEROQUEL [Suspect]
     Dosage: 25-400 MG
     Route: 048
     Dates: start: 20010227, end: 20031116
  4. SEROQUEL [Suspect]
     Dosage: 25-400 MG
     Route: 048
     Dates: start: 20010227, end: 20031116
  5. SEROQUEL [Suspect]
     Route: 048
     Dates: start: 20031117, end: 20050701
  6. SEROQUEL [Suspect]
     Route: 048
     Dates: start: 20031117, end: 20050701
  7. SEROQUEL [Suspect]
     Route: 048
     Dates: start: 20050823, end: 20060101
  8. SEROQUEL [Suspect]
     Route: 048
     Dates: start: 20050823, end: 20060101
  9. SEROQUEL [Suspect]
     Dosage: 25-300 MG
     Route: 048
  10. SEROQUEL [Suspect]
     Dosage: 25-300 MG
     Route: 048
  11. ZYPREXA [Concomitant]
     Dates: start: 19990218, end: 20001011
  12. PHENERGAN [Concomitant]
  13. CALAN-SR/COVERA-HS [Concomitant]
  14. DILAUDID [Concomitant]
  15. HABITROL [Concomitant]
  16. HUMULIN R [Concomitant]
  17. PROTONIX [Concomitant]
  18. AMARYL [Concomitant]
  19. REGLAN [Concomitant]
  20. BREVIBLOC [Concomitant]
  21. CARDIZEM [Concomitant]
  22. SIMETHICONE [Concomitant]
  23. WELLBUTRIN [Concomitant]
  24. CLONAZEPAM [Concomitant]
  25. DETROL LA [Concomitant]
  26. PREMARIN [Concomitant]
  27. PRILOSEC [Concomitant]
  28. HYDROCODONE BITARTRATE + ACETAMINOPHEN [Concomitant]
  29. ETODOLAC [Concomitant]
  30. PHENAZOPYRIDINE HCL TAB [Concomitant]
  31. HYDROXYZINE PAM [Concomitant]
  32. ENALAPRIL MALEATE [Concomitant]
  33. EFFEXOR XR [Concomitant]
  34. LEXAPRO [Concomitant]
  35. PANMIST-DM [Concomitant]
  36. ALLEGRA [Concomitant]

REACTIONS (10)
  - ABDOMINAL PAIN [None]
  - DIABETIC GASTROPARESIS [None]
  - GASTROENTERITIS [None]
  - HEPATITIS C [None]
  - HYPERGLYCAEMIA [None]
  - OBESITY [None]
  - PANCREATITIS [None]
  - PANCREATITIS ACUTE [None]
  - PANCREATITIS CHRONIC [None]
  - TYPE 2 DIABETES MELLITUS [None]
